FAERS Safety Report 7098032-0 (Version None)
Quarter: 2010Q4

REPORT INFORMATION
  Report Type: 
  Country: None (occurrence: None)
  Receive Date: 20101112
  Receipt Date: 20101104
  Transmission Date: 20110411
  Serious: Yes (Hospitalization, Other)
  Sender: FDA-Public Use
  Company Number: US-ASTRAZENECA-2009SE17230

PATIENT
  Age: 40 Year
  Sex: Female
  Weight: 90.7 kg

DRUGS (11)
  1. SEROQUEL [Suspect]
     Indication: BIPOLAR DISORDER
     Route: 048
     Dates: start: 20070101, end: 20080101
  2. SEROQUEL [Suspect]
     Indication: DEPRESSION
     Route: 048
     Dates: start: 20070101, end: 20080101
  3. SEROQUEL [Suspect]
     Route: 048
     Dates: start: 20080320
  4. SEROQUEL [Suspect]
     Route: 048
     Dates: start: 20080320
  5. HYDROCODONE BITARTRATE + ACETAMINOPHEN [Concomitant]
     Dosage: 5-500 MG DISPENSED
     Dates: start: 20080423
  6. IBUPROFEN [Concomitant]
     Dates: start: 20080423
  7. DIAZEPAM [Concomitant]
     Dates: start: 20080319
  8. ALPRAZOLAM [Concomitant]
     Dates: start: 20080626
  9. TRAMADOL HCL [Concomitant]
     Dates: start: 20080626
  10. MIRALAX [Concomitant]
  11. VALIUM [Concomitant]

REACTIONS (9)
  - ABDOMINAL DISTENSION [None]
  - CONSTIPATION [None]
  - GASTRIC HYPOMOTILITY [None]
  - GASTRITIS [None]
  - IMPAIRED GASTRIC EMPTYING [None]
  - INFLUENZA LIKE ILLNESS [None]
  - PANCREATITIS [None]
  - TYPE 2 DIABETES MELLITUS [None]
  - VOMITING [None]
